FAERS Safety Report 20755455 (Version 3)
Quarter: 2023Q1

REPORT INFORMATION
  Report Type: Report from Study
  Country: CA (occurrence: CA)
  Receive Date: 20220427
  Receipt Date: 20230206
  Transmission Date: 20230418
  Serious: Yes (Death, Hospitalization, Other)
  Sender: FDA-Public Use
  Company Number: CA-CELLTRION INC.-2022CA005072

PATIENT

DRUGS (3)
  1. TRUXIMA [Suspect]
     Active Substance: RITUXIMAB-ABBS
     Indication: Rheumatoid arthritis
     Dosage: 1000 MG
     Route: 042
     Dates: start: 20210728
  2. TRUXIMA [Suspect]
     Active Substance: RITUXIMAB-ABBS
     Dosage: WAIT FOURTEEN DAYS TO RECEIVE A SECOND INFUSION. REPEAT IN SIX MONTHS
     Dates: start: 20220407
  3. TRUXIMA [Suspect]
     Active Substance: RITUXIMAB-ABBS
     Dosage: WAIT FOURTEEN DAYS TO RECEIVE A SECOND INFUSION. REPEAT IN SIX MONTHS
     Dates: start: 20220421

REACTIONS (3)
  - COVID-19 [Fatal]
  - Rheumatoid arthritis [Unknown]
  - Cryoglobulinaemia [Unknown]

NARRATIVE: CASE EVENT DATE: 20220409
